FAERS Safety Report 9410654 (Version 1)
Quarter: 2013Q3

REPORT INFORMATION
  Report Type: Spontaneous
  Country: US (occurrence: US)
  Receive Date: 20130719
  Receipt Date: 20130719
  Transmission Date: 20140515
  Serious: No
  Sender: FDA-Public Use
  Company Number: US-BAYER-2013-087387

PATIENT
  Age: 67 Year
  Sex: Female

DRUGS (2)
  1. GADAVIST [Suspect]
     Indication: NUCLEAR MAGNETIC RESONANCE IMAGING BRAIN
     Dosage: 5 ML, ONCE
     Route: 042
     Dates: start: 20130716, end: 20130716
  2. GADAVIST [Suspect]
     Indication: CEREBELLOPONTINE ANGLE TUMOUR

REACTIONS (2)
  - Ocular hyperaemia [Recovered/Resolved]
  - Urticaria [Recovered/Resolved]
